FAERS Safety Report 14314604 (Version 2)
Quarter: 2018Q1

REPORT INFORMATION
  Report Type: Spontaneous
  Country: US (occurrence: US)
  Receive Date: 20171221
  Receipt Date: 20180111
  Transmission Date: 20180509
  Serious: Yes (Hospitalization)
  Sender: FDA-Public Use
  Company Number: US-VIFOR (INTERNATIONAL) INC.-VIT-2017-13861

PATIENT
  Sex: Female
  Weight: 55.84 kg

DRUGS (9)
  1. ARAVA [Concomitant]
     Active Substance: LEFLUNOMIDE
  2. NORCO [Concomitant]
     Active Substance: ACETAMINOPHEN\HYDROCODONE BITARTRATE
  3. ORENCIA [Concomitant]
     Active Substance: ABATACEPT
  4. VELTASSA [Suspect]
     Active Substance: PATIROMER
     Indication: HYPERKALAEMIA
     Route: 048
     Dates: start: 20170926
  5. LIDOCAINE. [Concomitant]
     Active Substance: LIDOCAINE
  6. COLCRYS [Concomitant]
     Active Substance: COLCHICINE
  7. LASIX [Concomitant]
     Active Substance: FUROSEMIDE
  8. ULTRAM [Concomitant]
     Active Substance: TRAMADOL HYDROCHLORIDE
  9. ROCALTROL [Concomitant]
     Active Substance: CALCITRIOL

REACTIONS (2)
  - Drug dose omission [Unknown]
  - Transfusion [Unknown]

NARRATIVE: CASE EVENT DATE: 2017
